FAERS Safety Report 10520368 (Version 2)
Quarter: 2014Q4

REPORT INFORMATION
  Report Type: Spontaneous
  Country: US (occurrence: US)
  Receive Date: 20141015
  Receipt Date: 20141121
  Transmission Date: 20150528
  Serious: No
  Sender: FDA-Public Use
  Company Number: US-GLAXOSMITHKLINE-US2014GSK001166

PATIENT
  Age: 3 Year
  Sex: Male

DRUGS (1)
  1. VENTOLIN HFA [Suspect]
     Active Substance: ALBUTEROL SULFATE
     Indication: PRODUCT USED FOR UNKNOWN INDICATION
     Dosage: 1 DF, 6D
     Route: 065

REACTIONS (4)
  - Malaise [Unknown]
  - Product quality issue [Unknown]
  - Drug ineffective [Unknown]
  - Ill-defined disorder [Unknown]
